FAERS Safety Report 11046223 (Version 8)
Quarter: 2025Q3

REPORT INFORMATION
  Report Type: Spontaneous
  Country: EU (occurrence: EU)
  Receive Date: 20150418
  Receipt Date: 20250718
  Transmission Date: 20251021
  Serious: Yes (Death, Hospitalization, Other)
  Sender: AUROBINDO
  Company Number: EU-AUROBINDO-AUR-APL-2015-03294

PATIENT
  Age: 58 Year
  Sex: Male

DRUGS (39)
  1. CEFTAZIDIME [Suspect]
     Active Substance: CEFTAZIDIME
     Indication: Pyrexia
     Route: 065
  2. CIPROFLOXACIN [Suspect]
     Active Substance: CIPROFLOXACIN
     Indication: Proteus test positive
     Route: 065
  3. CIPROFLOXACIN [Suspect]
     Active Substance: CIPROFLOXACIN
     Indication: Culture stool positive
  4. CIPROFLOXACIN [Suspect]
     Active Substance: CIPROFLOXACIN
     Indication: Antibiotic therapy
  5. PIPERACILLIN AND TAZOBACTAM [Suspect]
     Active Substance: PIPERACILLIN SODIUM\TAZOBACTAM SODIUM
     Indication: Pyrexia
     Route: 065
  6. PIPERACILLIN AND TAZOBACTAM [Suspect]
     Active Substance: PIPERACILLIN SODIUM\TAZOBACTAM SODIUM
     Indication: Antibiotic therapy
     Route: 065
  7. AMSACRINE [Suspect]
     Active Substance: AMSACRINE
     Indication: Chronic myeloid leukaemia
     Route: 065
  8. AMSACRINE [Suspect]
     Active Substance: AMSACRINE
     Indication: Chemotherapy
  9. AMSACRINE [Suspect]
     Active Substance: AMSACRINE
     Indication: Bone marrow conditioning regimen
  10. AMSACRINE [Suspect]
     Active Substance: AMSACRINE
     Indication: Radiotherapy
  11. AMIKACIN [Suspect]
     Active Substance: AMIKACIN
     Indication: Pyrexia
     Route: 065
  12. AMIKACIN [Suspect]
     Active Substance: AMIKACIN
     Indication: Proteus test positive
  13. CYCLOSPORINE [Suspect]
     Active Substance: CYCLOSPORINE
     Indication: Prophylaxis
     Route: 065
  14. CYCLOSPORINE [Suspect]
     Active Substance: CYCLOSPORINE
     Indication: Aspergillus test positive
  15. CYCLOSPORINE [Suspect]
     Active Substance: CYCLOSPORINE
     Indication: Stem cell transplant
  16. CYCLOSPORINE [Suspect]
     Active Substance: CYCLOSPORINE
     Indication: Prophylaxis against graft versus host disease
  17. CYTARABINE [Suspect]
     Active Substance: CYTARABINE
     Indication: Chronic myeloid leukaemia
     Route: 065
  18. CYTARABINE [Suspect]
     Active Substance: CYTARABINE
     Indication: Chemotherapy
  19. CYCLOPHOSPHAMIDE [Suspect]
     Active Substance: CYCLOPHOSPHAMIDE
     Indication: Chronic myeloid leukaemia
     Route: 065
  20. CYCLOPHOSPHAMIDE [Suspect]
     Active Substance: CYCLOPHOSPHAMIDE
     Indication: Prophylaxis against graft versus host disease
  21. CYCLOPHOSPHAMIDE [Suspect]
     Active Substance: CYCLOPHOSPHAMIDE
     Indication: Allogenic stem cell transplantation
  22. CYCLOPHOSPHAMIDE [Suspect]
     Active Substance: CYCLOPHOSPHAMIDE
     Indication: Bone marrow conditioning regimen
  23. FLUDARABINE [Suspect]
     Active Substance: FLUDARABINE PHOSPHATE
     Indication: Chronic myeloid leukaemia
     Route: 065
  24. IMIPENEM [Suspect]
     Active Substance: IMIPENEM
     Indication: Pyrexia
     Route: 065
  25. IMIPENEM [Suspect]
     Active Substance: IMIPENEM
     Indication: Antibiotic therapy
  26. METRONIDAZOLE [Suspect]
     Active Substance: METRONIDAZOLE
     Indication: Product used for unknown indication
     Route: 042
  27. MYCOPHENOLATE MOFETIL [Suspect]
     Active Substance: MYCOPHENOLATE MOFETIL
     Indication: Prophylaxis
     Route: 065
  28. MYCOPHENOLATE MOFETIL [Suspect]
     Active Substance: MYCOPHENOLATE MOFETIL
     Indication: Stem cell transplant
  29. MYCOPHENOLATE MOFETIL [Suspect]
     Active Substance: MYCOPHENOLATE MOFETIL
     Indication: Allogenic stem cell transplantation
  30. VANCOMYCIN [Suspect]
     Active Substance: VANCOMYCIN
     Indication: Product used for unknown indication
     Route: 048
  31. VORICONAZOLE [Suspect]
     Active Substance: VORICONAZOLE
     Indication: Aspergillus test positive
     Route: 065
  32. LAPINE T-LYMPHOCYTE IMMUNE GLOBULIN [Suspect]
     Active Substance: LAPINE T-LYMPHOCYTE IMMUNE GLOBULIN
     Indication: Allogenic stem cell transplantation
     Route: 065
  33. LENOGRASTIM [Concomitant]
     Active Substance: LENOGRASTIM
     Indication: Bone marrow conditioning regimen
     Route: 065
  34. LENOGRASTIM [Concomitant]
     Active Substance: LENOGRASTIM
     Indication: Sensitisation
  35. CIPROFLOXACIN [Concomitant]
     Active Substance: CIPROFLOXACIN
     Indication: Proteus test positive
     Route: 065
  36. CYTARABINE [Concomitant]
     Active Substance: CYTARABINE
     Indication: Immunosuppressant drug therapy
     Route: 065
  37. FLUDARABINE [Concomitant]
     Active Substance: FLUDARABINE PHOSPHATE
     Indication: Immunosuppressant drug therapy
     Route: 065
  38. CYCLOPHOSPHAMIDE [Concomitant]
     Active Substance: CYCLOPHOSPHAMIDE
     Indication: Immunosuppressant drug therapy
     Route: 065
  39. PIPERACILLIN [Suspect]
     Active Substance: PIPERACILLIN
     Indication: Pyrexia
     Route: 065

REACTIONS (28)
  - Aspergillus infection [Fatal]
  - Clostridium difficile infection [Fatal]
  - Clostridium difficile colitis [Fatal]
  - Dyspnoea [Fatal]
  - Diarrhoea [Fatal]
  - Death [Fatal]
  - Hypoxia [Fatal]
  - Hallucination [Fatal]
  - Graft versus host disease [Fatal]
  - Vomiting [Fatal]
  - Pyrexia [Fatal]
  - Rash erythematous [Fatal]
  - Multiple organ dysfunction syndrome [Fatal]
  - Acute graft versus host disease [Fatal]
  - Rash [Fatal]
  - Large intestine infection [Fatal]
  - Dermatitis infected [Fatal]
  - Bronchopulmonary aspergillosis [Fatal]
  - Aspergillus test positive [Unknown]
  - Cough [Fatal]
  - Colitis [Fatal]
  - Clostridium test positive [Fatal]
  - Condition aggravated [Unknown]
  - Haemodynamic instability [Unknown]
  - Intestinal ulcer [Fatal]
  - Proteus test positive [Fatal]
  - Congenital aplasia [Fatal]
  - Rash pustular [Fatal]
